FAERS Safety Report 16249893 (Version 1)
Quarter: 2019Q2

REPORT INFORMATION
  Report Type: Spontaneous
  Country: US (occurrence: US)
  Receive Date: 20190428
  Receipt Date: 20190428
  Transmission Date: 20190711
  Serious: Yes (Other)
  Sender: FDA-Public Use
  Company Number: None

PATIENT
  Age: 27 Year
  Sex: Female
  Weight: 62.6 kg

DRUGS (2)
  1. NUVARING [Suspect]
     Active Substance: ETHINYL ESTRADIOL\ETONOGESTREL
  2. LORATIDINE [Concomitant]
     Active Substance: LORATADINE

REACTIONS (7)
  - Mood swings [None]
  - Anger [None]
  - Weight increased [None]
  - Anxiety [None]
  - Mental impairment [None]
  - Depression [None]
  - Dysmenorrhoea [None]

NARRATIVE: CASE EVENT DATE: 20190427
